FAERS Safety Report 22585127 (Version 1)
Quarter: 2023Q2

REPORT INFORMATION
  Report Type: Spontaneous
  Country: US (occurrence: US)
  Receive Date: 20230609
  Receipt Date: 20230609
  Transmission Date: 20230721
  Serious: Yes (Other)
  Sender: FDA-Public Use
  Company Number: US-GILEAD-2023-0631914

PATIENT

DRUGS (1)
  1. TRUVADA [Suspect]
     Active Substance: EMTRICITABINE\TENOFOVIR DISOPROXIL FUMARATE
     Indication: HIV infection
     Dosage: UNK
     Route: 048
     Dates: start: 2009

REACTIONS (5)
  - Renal failure [Not Recovered/Not Resolved]
  - Pain [Unknown]
  - Anhedonia [Unknown]
  - Anxiety [Unknown]
  - Emotional distress [Unknown]
